FAERS Safety Report 9291832 (Version 1)
Quarter: 2013Q2

REPORT INFORMATION
  Report Type: Spontaneous
  Country: US (occurrence: US)
  Receive Date: 20130516
  Receipt Date: 20130516
  Transmission Date: 20140414
  Serious: Yes (Other)
  Sender: FDA-Public Use
  Company Number: US-RANBAXY-2013US-68850

PATIENT
  Age: 5 Year
  Sex: Male

DRUGS (1)
  1. ULTRAVATE [Suspect]
     Indication: BITE
     Dosage: UNK
     Route: 065
     Dates: start: 20130424

REACTIONS (2)
  - Vision blurred [Unknown]
  - Drug prescribing error [Unknown]
